FAERS Safety Report 16969107 (Version 1)
Quarter: 2019Q4

REPORT INFORMATION
  Report Type: Spontaneous
  Country: JP (occurrence: JP)
  Receive Date: 20191029
  Receipt Date: 20191029
  Transmission Date: 20200122
  Serious: Yes (Other)
  Sender: FDA-Public Use
  Company Number: JP-TEVA-2019-JP-1128768

PATIENT
  Age: 65 Year
  Sex: Male
  Weight: 76.9 kg

DRUGS (5)
  1. LEUCOVORIN. [Suspect]
     Active Substance: LEUCOVORIN
     Indication: COLON CANCER METASTATIC
     Dosage: 200 MG/M2; PART OF MFOLFOX-6 REGIMEN
     Route: 065
     Dates: start: 201712
  2. OXALIPLATIN. [Suspect]
     Active Substance: OXALIPLATIN
     Indication: COLON CANCER METASTATIC
     Dosage: 60 MG/M2; PART OF MFOLFOX-6 REGIMEN
     Route: 065
     Dates: start: 201712
  3. 5-FLUOROURACIL [Suspect]
     Active Substance: FLUOROURACIL
     Indication: COLON CANCER METASTATIC
     Dosage: BOLUS; 400 MG/M2; PART OF MFOLFOX-6 REGIMEN
     Route: 065
     Dates: start: 201712
  4. 5-FLUOROURACIL [Suspect]
     Active Substance: FLUOROURACIL
     Dosage: 46 HOURS INJECTION; 2400 MG/M2
     Route: 065
     Dates: start: 201712
  5. BEVACIZUMAB. [Suspect]
     Active Substance: BEVACIZUMAB
     Indication: COLON CANCER METASTATIC
     Dosage: 46 HOURS INJECTION; 5 MG/KG
     Route: 065
     Dates: start: 201712

REACTIONS (2)
  - Thrombocytopenia [Unknown]
  - Neuropathy peripheral [Unknown]
